FAERS Safety Report 10154899 (Version 1)
Quarter: 2014Q2

REPORT INFORMATION
  Report Type: Spontaneous
  Country: US (occurrence: None)
  Receive Date: 20140505
  Receipt Date: 20140505
  Transmission Date: 20141212
  Serious: No
  Sender: FDA-Public Use
  Company Number: None

PATIENT
  Age: 62 Year
  Sex: Female
  Weight: 69.85 kg

DRUGS (1)
  1. LEVOTHYROXIN [Suspect]
     Indication: HYPOTHYROIDISM
     Route: 048
     Dates: start: 20140410, end: 20140501

REACTIONS (7)
  - Hyperhidrosis [None]
  - Hypertension [None]
  - Headache [None]
  - Muscle spasms [None]
  - Middle insomnia [None]
  - Arthropathy [None]
  - Chest discomfort [None]
